FAERS Safety Report 4307544-1 (Version None)
Quarter: 2004Q1

REPORT INFORMATION
  Report Type: 
  Country: None (occurrence: None)
  Receive Date: 20040226
  Receipt Date: 20040213
  Transmission Date: 20041129
  Serious: Yes (Other)
  Sender: FDA-Public Use
  Company Number: HQWYE037417FEB04

PATIENT
  Age: 64 Year
  Sex: Female

DRUGS (3)
  1. EFFEXOR XR [Suspect]
     Indication: MAJOR DEPRESSION
     Dosage: 75 MG 2 X PER 1 DAY, ORAL
     Route: 048
     Dates: start: 20030101, end: 20030724
  2. SIMVASTATIN [Concomitant]
  3. TIBOLONE (TOBOLONE) [Concomitant]

REACTIONS (3)
  - CONDITION AGGRAVATED [None]
  - HYPERTENSION [None]
  - RENAL IMPAIRMENT [None]
